FAERS Safety Report 20745163 (Version 3)
Quarter: 2022Q2

REPORT INFORMATION
  Report Type: Report from Study
  Country: US (occurrence: US)
  Receive Date: 20220425
  Receipt Date: 20220528
  Transmission Date: 20220720
  Serious: Yes (Other)
  Sender: FDA-Public Use
  Company Number: US-NOVARTISPH-NVSC2022US091466

PATIENT
  Age: 58 Year
  Sex: Female
  Weight: 88.5 kg

DRUGS (7)
  1. COSENTYX [Suspect]
     Active Substance: SECUKINUMAB
     Indication: Psoriasis
     Dosage: 300 MG, QMO (EVERY 4 WEEKS)
     Route: 058
     Dates: start: 20200512
  2. COSENTYX [Suspect]
     Active Substance: SECUKINUMAB
     Dosage: 300 MG, QMO (EVERY 4 WEEKS)
     Route: 058
  3. ASPIRIN [Concomitant]
     Active Substance: ASPIRIN
     Indication: Product used for unknown indication
     Dosage: 81 MG
     Route: 048
  4. FLUCONAZOLE [Concomitant]
     Active Substance: FLUCONAZOLE
     Indication: Product used for unknown indication
     Dosage: 150 MG
     Route: 065
  5. NITROFURANTOIN [Concomitant]
     Active Substance: NITROFURANTOIN
     Indication: Product used for unknown indication
     Dosage: UNK
     Route: 065
  6. CALCIPOTRIENE AND BETAMETHASONE DIPROPIONATE [Concomitant]
     Active Substance: BETAMETHASONE DIPROPIONATE\CALCIPOTRIENE
     Indication: Psoriasis
     Dosage: 2-6 DAYS WEEKLY
     Route: 065
  7. CEFPODOXIME [Concomitant]
     Active Substance: CEFPODOXIME
     Indication: Product used for unknown indication
     Dosage: UNK
     Route: 065

REACTIONS (18)
  - Cystitis [Recovered/Resolved]
  - Nephrolithiasis [Recovered/Resolved]
  - Urinary tract infection [Recovered/Resolved]
  - Cystitis noninfective [Recovered/Resolved]
  - Blood urine present [Recovered/Resolved]
  - Dysuria [Unknown]
  - Pollakiuria [Recovered/Resolved]
  - Micturition urgency [Recovered/Resolved]
  - Urine odour abnormal [Unknown]
  - Flank pain [Unknown]
  - Fatigue [Unknown]
  - Constipation [Unknown]
  - Abdominal pain [Unknown]
  - Abdominal distension [Unknown]
  - Abdominal tenderness [Unknown]
  - Chills [Unknown]
  - Arthralgia [Unknown]
  - Psoriasis [Unknown]

NARRATIVE: CASE EVENT DATE: 20211201
